FAERS Safety Report 6775105-0 (Version None)
Quarter: 2010Q2

REPORT INFORMATION
  Report Type: 
  Country: None (occurrence: None)
  Receive Date: 20100617
  Receipt Date: 20100614
  Transmission Date: 20101027
  Serious: Yes (Other)
  Sender: FDA-Public Use
  Company Number: D0067944A

PATIENT
  Age: 54 Year
  Sex: Female

DRUGS (3)
  1. AMOXICILLIN [Suspect]
     Indication: PERIODONTITIS
     Dosage: 500MG THREE TIMES PER DAY
     Route: 048
  2. METRONIDAZOLE [Suspect]
     Indication: PERIODONTITIS
     Dosage: 400MG THREE TIMES PER DAY
     Route: 048
  3. OLMESARTAN MEDOXOMIL [Concomitant]
     Indication: HYPERTENSION
     Dosage: 20MG UNKNOWN
     Route: 048

REACTIONS (5)
  - ANGIOEDEMA [None]
  - FACE OEDEMA [None]
  - FLUSHING [None]
  - PRURITUS [None]
  - URTICARIA [None]
